FAERS Safety Report 4651021-5 (Version None)
Quarter: 2005Q2

REPORT INFORMATION
  Report Type: 
  Country: None (occurrence: None)
  Receive Date: 20050429
  Receipt Date: 20050420
  Transmission Date: 20051028
  Serious: Yes (Life-Threatening, Other)
  Sender: FDA-Public Use
  Company Number: 2005062991

PATIENT
  Age: 43 Year
  Sex: Female
  Weight: 52.1637 kg

DRUGS (4)
  1. DETROL LA [Suspect]
     Indication: HYPERTONIC BLADDER
     Dosage: 4 MG (4 MG, 1 IN 1 D), ORAL
     Route: 048
     Dates: start: 20050228, end: 20050419
  2. SERTRALINE HCL [Suspect]
     Indication: PAIN
     Dosage: ORAL
     Route: 048
     Dates: start: 20050417, end: 20050420
  3. CYANOCOBALAMIN-TANNIN COMPLEX (CYANOCOBALAMIN-TANNIN COMPLEX) [Concomitant]
  4. GENERAL NUTRIENTS (GENERAL NUTRIENTS) [Concomitant]

REACTIONS (19)
  - AGITATION [None]
  - CONSTIPATION [None]
  - CRYING [None]
  - CYSTITIS [None]
  - DEPRESSION [None]
  - DRY EYE [None]
  - DRY MOUTH [None]
  - EMOTIONAL DISORDER [None]
  - HALLUCINATION, AUDITORY [None]
  - HEADACHE [None]
  - HEART RATE INCREASED [None]
  - IMPAIRED WORK ABILITY [None]
  - PARANOIA [None]
  - POOR QUALITY DRUG ADMINISTERED [None]
  - SUICIDAL IDEATION [None]
  - TREMOR [None]
  - URINARY INCONTINENCE [None]
  - URINE ODOUR ABNORMAL [None]
  - VISUAL DISTURBANCE [None]
